FAERS Safety Report 7927857-1 (Version None)
Quarter: 2011Q4

REPORT INFORMATION
  Report Type: 
  Country: None (occurrence: None)
  Receive Date: 20111118
  Receipt Date: 20111118
  Transmission Date: 20120403
  Serious: Yes (Life-Threatening, Disabling)
  Sender: FDA-Public Use
  Company Number: None

PATIENT
  Age: 62 Year
  Sex: Female
  Weight: 89.9 kg

DRUGS (1)
  1. CHERRY SORE THROAT SPRAY [Suspect]
     Indication: OROPHARYNGEAL PAIN
     Dosage: 2 SPRAYS
     Route: 049
     Dates: start: 20111114, end: 20111114

REACTIONS (4)
  - LARYNGEAL OEDEMA [None]
  - HYPOXIA [None]
  - RESPIRATORY DISTRESS [None]
  - STRIDOR [None]
